FAERS Safety Report 13122245 (Version 4)
Quarter: 2017Q1

REPORT INFORMATION
  Report Type: Spontaneous
  Country: US (occurrence: US)
  Receive Date: 20170117
  Receipt Date: 20170320
  Transmission Date: 20170428
  Serious: No
  Sender: FDA-Public Use
  Company Number: US-PFIZER INC-2017017941

PATIENT
  Age: 45 Year
  Sex: Female
  Weight: 74.84 kg

DRUGS (4)
  1. KERYDIN [Suspect]
     Active Substance: TAVABOROLE
     Dosage: UNK
  2. NECON [Concomitant]
     Active Substance: ETHINYL ESTRADIOL\NORETHINDRONE
     Indication: CONTRACEPTION
     Dosage: 1 DF (1 TABLET), CYCLIC (DAILY FOR 21 DAYS EACH MONTH)
     Route: 048
  3. KERYDIN [Suspect]
     Active Substance: TAVABOROLE
     Indication: ONYCHOMYCOSIS
     Dosage: UNK, DAILY [1-2 DROPS DAILY X48 WKS]
     Route: 061
     Dates: start: 20150713, end: 201608
  4. KERYDIN [Suspect]
     Active Substance: TAVABOROLE
     Dosage: 5 % SOL APPLIED TO AFFECTED NAIL, 1X/DAY
     Route: 061
     Dates: end: 201701

REACTIONS (7)
  - Product deposit [Unknown]
  - Product quality issue [Unknown]
  - Product label issue [Unknown]
  - Skin fissures [Recovering/Resolving]
  - Skin irritation [Recovering/Resolving]
  - Erythema [Recovering/Resolving]
  - Poor quality drug administered [Unknown]
